FAERS Safety Report 7558979-5 (Version None)
Quarter: 2011Q2

REPORT INFORMATION
  Report Type: 
  Country: None (occurrence: None)
  Receive Date: 20110621
  Receipt Date: 20110608
  Transmission Date: 20111010
  Serious: Yes (Other)
  Sender: FDA-Public Use
  Company Number: NL-ELI_LILLY_AND_COMPANY-NL201105000501

PATIENT
  Sex: Female
  Weight: 69 kg

DRUGS (23)
  1. CANDESARTAN CILEXETIL [Concomitant]
     Dosage: 4 MG, QD
  2. NITROFURANTOIN [Concomitant]
     Dosage: 100 MG, UNK
  3. OXYCODON [Concomitant]
     Dosage: 10 MG, UNK
  4. ACETYL SALICYLIC ACID COMPOUND TAB [Concomitant]
     Indication: HAEMODILUTION
     Dosage: 80 MG, QD
     Route: 048
     Dates: start: 19990101
  5. ESTRIOL [Concomitant]
     Dosage: 2 MG, QD
  6. PANTOPRAZOLE [Concomitant]
     Indication: GASTRIC DISORDER
     Dosage: 40 MG, QD
     Route: 048
     Dates: start: 20090101
  7. TRAMADOL HCL [Concomitant]
     Dosage: 50 MG, UNK
  8. CALCIUM CARBONATE W/COLECALCIFEROL [Concomitant]
     Indication: OSTEOPOROSIS
     Dosage: 1 DF, QD
     Route: 048
  9. FENTANYL-100 [Concomitant]
     Indication: PAIN
     Dosage: UNK, QD
     Dates: start: 20110223
  10. IBUPROFEN [Concomitant]
     Dosage: 600 MG, UNK
  11. PREDNISOLONE [Concomitant]
     Dosage: 5 MG, QD
  12. FORTEO [Suspect]
     Indication: OSTEOPOROSIS
     Dosage: 20 UG, QD
     Route: 058
     Dates: start: 20100623
  13. ESTRIOL [Concomitant]
     Dosage: 0.5 MG, UNK
  14. FOSFOMYCIN [Concomitant]
     Indication: RESPIRATORY TRACT INFECTION
     Dosage: 3 G, QD
     Route: 048
     Dates: end: 20100614
  15. LISINOPRIL [Concomitant]
     Indication: HYPERTENSION
     Dosage: 10 MG, QD
     Route: 048
  16. SIMVASTATIN [Concomitant]
     Indication: BLOOD CHOLESTEROL INCREASED
     Dosage: 10 MG, QD
     Route: 048
     Dates: start: 19990101
  17. ETANERCEPT [Concomitant]
     Indication: MUSCULOSKELETAL PAIN
     Dosage: UNK UNK, WEEKLY (1/W)
     Route: 058
     Dates: start: 20020101
  18. HYDROCHLOROTHIAZIDE [Concomitant]
     Indication: HYPERTENSION
     Dosage: 12.5 MG, UNK
     Route: 048
  19. METOPROLOL SUCCINATE [Concomitant]
     Indication: HYPERTENSION
     Dosage: 50 MG, QD
     Route: 048
  20. TEMAZEPAM [Concomitant]
     Indication: INSOMNIA
     Dosage: 10 MG, QD
     Route: 048
     Dates: start: 20000101
  21. CODEINE PHOSPHATE AND ACETAMINOPHEN [Concomitant]
     Dosage: UNK, UNKNOWN
  22. POLYETHYLENE GLYCOL [Concomitant]
     Indication: CONSTIPATION
     Dosage: 1 DF, QD
     Route: 048
     Dates: start: 20100610
  23. MIRTAZAPINE [Concomitant]
     Dosage: 15 MG, UNK

REACTIONS (3)
  - CYSTITIS [None]
  - UTERINE PROLAPSE [None]
  - SPINAL COLUMN INJURY [None]
